FAERS Safety Report 6646541-8 (Version None)
Quarter: 2010Q1

REPORT INFORMATION
  Report Type: 
  Country: None (occurrence: None)
  Receive Date: 20100322
  Receipt Date: 20100322
  Transmission Date: 20100710
  Serious: Yes (Disabling)
  Sender: FDA-Public Use
  Company Number: None

PATIENT
  Age: 58 Year
  Sex: Female
  Weight: 117.9352 kg

DRUGS (3)
  1. ZYVOX [Suspect]
     Dosage: 1 PILL 2 X A DAY
  2. AVELOX [Suspect]
     Dosage: 1 PILL 3 X A DAY
  3. METRONIDAZOLE [Suspect]

REACTIONS (5)
  - HYPOAESTHESIA [None]
  - PAIN IN EXTREMITY [None]
  - PARAESTHESIA [None]
  - RASH GENERALISED [None]
  - SKIN DISCOLOURATION [None]
